FAERS Safety Report 5338290-3 (Version None)
Quarter: 2007Q2

REPORT INFORMATION
  Report Type: 
  Country: None (occurrence: None)
  Receive Date: 20070327
  Receipt Date: 20070223
  Transmission Date: 20071010
  Serious: Yes (Other)
  Sender: FDA-Public Use
  Company Number: 237148

PATIENT
  Sex: Male
  Weight: 70.3 kg

DRUGS (1)
  1. AVASTIN [Suspect]
     Indication: COLORECTAL CANCER
     Dates: start: 20050607

REACTIONS (1)
  - MYOCARDIAL INFARCTION [None]
